FAERS Safety Report 13120807 (Version 1)
Quarter: 2017Q1

REPORT INFORMATION
  Report Type: Report from Study
  Country: US (occurrence: US)
  Receive Date: 20170117
  Receipt Date: 20170117
  Transmission Date: 20170428
  Serious: Yes (Hospitalization)
  Sender: FDA-Public Use
  Company Number: US-ROCHE-1878181

PATIENT
  Sex: Male
  Weight: 112.14 kg

DRUGS (10)
  1. ESBRIET [Suspect]
     Active Substance: PIRFENIDONE
     Indication: IDIOPATHIC PULMONARY FIBROSIS
     Dosage: 3 CAPSULES THREE TIMES PER DAY ;ONGOING: NO
     Route: 048
  2. ESBRIET [Suspect]
     Active Substance: PIRFENIDONE
     Dosage: 2 TABLETS THREE TIMES PER DAY ;ONGOING: YES
     Route: 048
     Dates: start: 20170104
  3. ESBRIET [Suspect]
     Active Substance: PIRFENIDONE
     Dosage: 3 CAPSULES THREE TIMES PER DAY ;ONGOING: YES
     Route: 048
     Dates: start: 20170105
  4. PROAIR HFA [Concomitant]
     Active Substance: ALBUTEROL SULFATE
     Dosage: 108 90 BASE
     Route: 065
  5. IPRATROPIUM [Concomitant]
     Active Substance: IPRATROPIUM
     Dosage: (0.5-2.5 MG/3ML SOLUTION 1 INHALATION 2 TIMES DAILY)
     Route: 065
  6. LOPRESSOR [Concomitant]
     Active Substance: METOPROLOL TARTRATE
     Dosage: 50 MG TABLET 1 ORAL DAILY
     Route: 065
  7. NASONEX AQUEOUS [Concomitant]
     Dosage: (50 MCG/ACT SUSPENSION, 2 NASAL 2 TIMES DAILY)
     Route: 065
  8. PROTONIX [Concomitant]
     Active Substance: PANTOPRAZOLE SODIUM
     Dosage: (40 MG TABLET DR 1 ORAL DAILY)
     Route: 065
  9. NITROSTAT [Concomitant]
     Active Substance: NITROGLYCERIN
     Dosage: 0.3 MG TABLET SUBLINGUAL, 1 SUBLINGUAL AS NEEDED
     Route: 065
  10. HYDROCHLOROTHIAZIDE. [Concomitant]
     Active Substance: HYDROCHLOROTHIAZIDE
     Dosage: (25 MG TABLET, 1 ORAL DAILY)
     Route: 065

REACTIONS (5)
  - Varicose vein [Not Recovered/Not Resolved]
  - Cardiac failure congestive [Unknown]
  - Enteritis infectious [Recovered/Resolved]
  - Intestinal varices haemorrhage [Recovered/Resolved]
  - Splenomegaly [Unknown]
